FAERS Safety Report 24335808 (Version 1)
Quarter: 2024Q3

REPORT INFORMATION
  Report Type: Report from Study
  Country: HU (occurrence: HU)
  Receive Date: 20240919
  Receipt Date: 20240919
  Transmission Date: 20241016
  Serious: Yes (Death)
  Sender: RECORDATI
  Company Number: HU-ORPHANEU-2024007048

PATIENT

DRUGS (2)
  1. SILTUXIMAB [Suspect]
     Active Substance: SILTUXIMAB
     Indication: Castleman^s disease
     Dosage: 11MG/KG
  2. SILTUXIMAB [Suspect]
     Active Substance: SILTUXIMAB
     Dosage: Q3W (EVERY 3 WEEKS) 16 INFUSIONS

REACTIONS (1)
  - Respiratory failure [Fatal]
